FAERS Safety Report 24910903 (Version 1)
Quarter: 2025Q1

REPORT INFORMATION
  Report Type: Spontaneous
  Country: US (occurrence: US)
  Receive Date: 20250131
  Receipt Date: 20250131
  Transmission Date: 20250408
  Serious: No
  Sender: BIOGEN
  Company Number: US-BIOGEN-2021BI00976793

PATIENT
  Sex: Female

DRUGS (2)
  1. TECFIDERA [Suspect]
     Active Substance: DIMETHYL FUMARATE
     Indication: Multiple sclerosis
     Route: 050
     Dates: start: 20130513, end: 20210131
  2. ASPIRIN [Suspect]
     Active Substance: ASPIRIN
     Indication: Product used for unknown indication
     Route: 050

REACTIONS (9)
  - Hyperchlorhydria [Not Recovered/Not Resolved]
  - Flatulence [Unknown]
  - Abdominal discomfort [Unknown]
  - Dizziness [Recovered/Resolved]
  - Brain fog [Recovered/Resolved]
  - Retching [Recovered/Resolved]
  - Hot flush [Not Recovered/Not Resolved]
  - Dyspepsia [Unknown]
  - Abdominal pain upper [Recovered/Resolved]
